FAERS Safety Report 6068982-2 (Version None)
Quarter: 2009Q1

REPORT INFORMATION
  Report Type: 
  Country: None (occurrence: None)
  Receive Date: 20090206
  Receipt Date: 20090126
  Transmission Date: 20090719
  Serious: Yes (Hospitalization)
  Sender: FDA-Public Use
  Company Number: DE-MERCK-0901DEU00262

PATIENT
  Age: 59 Year
  Sex: Male
  Weight: 75 kg

DRUGS (9)
  1. EMEND [Suspect]
     Indication: PROPHYLAXIS OF NAUSEA AND VOMITING
     Route: 048
     Dates: start: 20090114, end: 20090114
  2. EMEND [Suspect]
     Route: 048
     Dates: start: 20090115, end: 20090116
  3. DEXAMETHASONE [Concomitant]
     Route: 065
  4. UNAT [Concomitant]
     Indication: OEDEMA PERIPHERAL
     Route: 048
  5. PANTOZOL [Concomitant]
     Route: 048
  6. TEPILTA [Concomitant]
     Route: 048
  7. ENOXAPARIN SODIUM [Concomitant]
     Route: 058
  8. POTASSIUM CHLORIDE [Concomitant]
     Route: 065
  9. [THERAPY UNSPECIFIED] [Concomitant]
     Route: 065

REACTIONS (1)
  - TRISMUS [None]
